FAERS Safety Report 22249218 (Version 1)
Quarter: 2023Q2

REPORT INFORMATION
  Report Type: Spontaneous
  Country: US (occurrence: None)
  Receive Date: 20230424
  Receipt Date: 20230424
  Transmission Date: 20230721
  Serious: Yes (Other)
  Sender: FDA-Public Use
  Company Number: None

PATIENT
  Age: 79 Year
  Sex: Male
  Weight: 81.19 kg

DRUGS (7)
  1. ROPIVACAINE [Suspect]
     Active Substance: ROPIVACAINE
  2. BYSTOLIC [Concomitant]
     Active Substance: NEBIVOLOL HYDROCHLORIDE
  3. Doxsocin [Concomitant]
  4. PRALUENT [Concomitant]
     Active Substance: ALIROCUMAB
  5. PREVACID [Concomitant]
     Active Substance: LANSOPRAZOLE
  6. VITAMIN B12 [Concomitant]
     Active Substance: CYANOCOBALAMIN
  7. ASPIRIN [Concomitant]
     Active Substance: ASPIRIN

REACTIONS (9)
  - Dyspnoea [None]
  - Diaphragmatic disorder [None]
  - Chest discomfort [None]
  - Cough [None]
  - Pain [None]
  - Myalgia [None]
  - Muscle spasms [None]
  - Hypoaesthesia [None]
  - Pain in extremity [None]

NARRATIVE: CASE EVENT DATE: 20230423
